FAERS Safety Report 8740907 (Version 2)
Quarter: 2012Q4

REPORT INFORMATION
  Report Type: Report from Study
  Country: ES (occurrence: ES)
  Receive Date: 20120823
  Receipt Date: 20120918
  Transmission Date: 20130627
  Serious: Yes (Hospitalization)
  Sender: FDA-Public Use
  Company Number: ES-009507513-1208ESP009303

PATIENT

DRUGS (2)
  1. JANUMET [Suspect]
     Indication: DIABETES MELLITUS
     Dosage: Unknown
     Route: 048
     Dates: start: 20100921, end: 20101007
  2. IXIARO [Interacting]
     Indication: HYPERTENSION
     Dosage: 20 mg, qd
     Route: 048
     Dates: start: 20100921, end: 20101007

REACTIONS (5)
  - Renal failure acute [Recovered/Resolved]
  - Vomiting [Recovered/Resolved]
  - Drug interaction [Recovered/Resolved]
  - Decreased appetite [Recovered/Resolved]
  - Anuria [Recovered/Resolved]
